FAERS Safety Report 8720601 (Version 2)
Quarter: 2015Q2

REPORT INFORMATION
  Report Type: Report from Study
  Country: US (occurrence: US)
  Receive Date: 20120912
  Receipt Date: 20150625
  Transmission Date: 20150821
  Serious: Yes (Hospitalization)
  Sender: FDA-Public Use
  Company Number: US-ROCHE-1098886

PATIENT
  Age: 39 Year
  Sex: Male

DRUGS (7)
  1. MORPHINE [Concomitant]
     Active Substance: MORPHINE
  2. LOPRESSOR [Concomitant]
     Active Substance: METOPROLOL TARTRATE
     Route: 048
  3. LOPRESSOR [Concomitant]
     Active Substance: METOPROLOL TARTRATE
     Route: 042
  4. ACTIVASE [Suspect]
     Active Substance: ALTEPLASE
     Indication: ACUTE MYOCARDIAL INFARCTION
     Dosage: OVER 9 MINS
     Route: 065
  5. ASPIRIN. [Concomitant]
     Active Substance: ASPIRIN
     Route: 065
     Dates: end: 19920420
  6. TOPROL XL [Concomitant]
     Active Substance: METOPROLOL SUCCINATE
     Route: 065
  7. HEPARIN IV (BOLUS) [Concomitant]
     Active Substance: HEPARIN SODIUM
     Route: 040

REACTIONS (3)
  - Electrocardiogram ST segment depression [Unknown]
  - Headache [Unknown]
  - Bronchitis [Unknown]
